FAERS Safety Report 7124951-2 (Version None)
Quarter: 2010Q4

REPORT INFORMATION
  Report Type: 
  Country: None (occurrence: None)
  Receive Date: 20101123
  Receipt Date: 20101123
  Transmission Date: 20110411
  Serious: Yes (Other)
  Sender: FDA-Public Use
  Company Number: None

PATIENT
  Age: 70 Year
  Sex: Female
  Weight: 105 kg

DRUGS (2)
  1. VANCOMYCIN [Suspect]
     Indication: ESCHERICHIA INFECTION
     Dosage: 1250 MG Q24H IV
     Route: 042
     Dates: start: 20101029, end: 20101031
  2. VANCOMYCIN [Suspect]
     Indication: UROSEPSIS
     Dosage: 1250 MG Q24H IV
     Route: 042
     Dates: start: 20101029, end: 20101031

REACTIONS (2)
  - HYPOTENSION [None]
  - UNRESPONSIVE TO STIMULI [None]
